FAERS Safety Report 8335298-0 (Version None)
Quarter: 2012Q2

REPORT INFORMATION
  Report Type: 
  Country: None (occurrence: None)
  Receive Date: 20120503
  Receipt Date: 20120501
  Transmission Date: 20120825
  Serious: Yes (Hospitalization, Other)
  Sender: FDA-Public Use
  Company Number: JP-PFIZER INC-2012106930

PATIENT
  Age: 35 Year
  Sex: Female

DRUGS (3)
  1. CARBAMAZEPINE [Interacting]
     Dosage: 200 MG, UNK
     Route: 048
  2. CARBAMAZEPINE [Interacting]
     Indication: EPILEPSY
     Dosage: 600 MG, UNK
     Route: 048
  3. SOLU-MEDROL [Suspect]
     Indication: MULTIPLE SCLEROSIS
     Dosage: UNK
     Dates: start: 20120301

REACTIONS (3)
  - DRUG INTERACTION [None]
  - ANTICONVULSANT DRUG LEVEL ABNORMAL [None]
  - TREATMENT NONCOMPLIANCE [None]
